FAERS Safety Report 13894612 (Version 3)
Quarter: 2017Q3

REPORT INFORMATION
  Report Type: Spontaneous
  Country: CN (occurrence: CN)
  Receive Date: 20170823
  Receipt Date: 20170831
  Transmission Date: 20171127
  Serious: Yes (Death, Hospitalization)
  Sender: FDA-Public Use
  Company Number: CN-ROCHE-1981450

PATIENT
  Age: 30 Year
  Sex: Female

DRUGS (2)
  1. DOCETAXEL. [Concomitant]
     Active Substance: DOCETAXEL
     Indication: BREAST CANCER
     Route: 065
     Dates: start: 20170722
  2. HERCEPTIN [Suspect]
     Active Substance: TRASTUZUMAB
     Indication: BREAST CANCER
     Dosage: FOR 1 YEARS
     Route: 065
     Dates: start: 20170722, end: 20170722

REACTIONS (2)
  - Gastrointestinal oedema [Unknown]
  - Sepsis [Fatal]

NARRATIVE: CASE EVENT DATE: 20170823
